FAERS Safety Report 20181340 (Version 1)
Quarter: 2021Q4

REPORT INFORMATION
  Report Type: Spontaneous
  Country: CN (occurrence: CN)
  Receive Date: 20211214
  Receipt Date: 20211214
  Transmission Date: 20220303
  Serious: Yes (Death, Hospitalization, Other)
  Sender: FDA-Public Use
  Company Number: CN-SA-2021SA412803

PATIENT
  Age: 53 Year
  Sex: Male

DRUGS (8)
  1. METHYLPREDNISOLONE [Suspect]
     Active Substance: METHYLPREDNISOLONE
     Indication: Acute graft versus host disease
     Dosage: 10 MG/KG (INTIAL DOSE)
     Dates: start: 2016
  2. METHYLPREDNISOLONE [Suspect]
     Active Substance: METHYLPREDNISOLONE
     Dosage: 8 MG/KG, QD
     Dates: start: 2016
  3. METHYLPREDNISOLONE [Suspect]
     Active Substance: METHYLPREDNISOLONE
     Dosage: 100 MG, QD
  4. METHYLPREDNISOLONE [Suspect]
     Active Substance: METHYLPREDNISOLONE
     Dosage: 20 MG, QD
  5. ANTI-THYMOCYTE GLOBULIN (RABBIT) NOS [Suspect]
     Active Substance: LAPINE T-LYMPHOCYTE IMMUNE GLOBULIN
     Indication: Acute graft versus host disease
     Dosage: 50 MG, QD
  6. CYCLOSPORINE [Suspect]
     Active Substance: CYCLOSPORINE
     Indication: Immunosuppressant drug therapy
     Dosage: 5-8 NG/ML
  7. CYCLOSPORINE [Suspect]
     Active Substance: CYCLOSPORINE
     Dosage: UNK, 600-800 NG/ML IN 1 TO 3 MONTHS
  8. MYCOPHENOLATE MOFETIL [Suspect]
     Active Substance: MYCOPHENOLATE MOFETIL
     Indication: Immunosuppressant drug therapy
     Dosage: UNK

REACTIONS (12)
  - Acute graft versus host disease [Fatal]
  - Rash [Fatal]
  - Pyrexia [Fatal]
  - Diarrhoea [Fatal]
  - Pancytopenia [Fatal]
  - Apoptosis [Fatal]
  - Lymphocytic infiltration [Fatal]
  - Myelosuppression [Fatal]
  - Sepsis [Fatal]
  - Malnutrition [Unknown]
  - Protein-losing gastroenteropathy [Unknown]
  - Malabsorption [Unknown]
